FAERS Safety Report 4918751-9 (Version None)
Quarter: 2006Q1

REPORT INFORMATION
  Report Type: 
  Country: None (occurrence: None)
  Receive Date: 20060216
  Receipt Date: 20060127
  Transmission Date: 20060701
  Serious: Yes (Hospitalization)
  Sender: FDA-Public Use
  Company Number: US200601005151

PATIENT
  Age: 89 Year
  Sex: Female

DRUGS (2)
  1. FORTEO [Suspect]
     Indication: BACK DISORDER
     Dates: start: 20050725
  2. FORTEO [Concomitant]

REACTIONS (4)
  - CHOLECYSTECTOMY [None]
  - GASTROINTESTINAL DISORDER [None]
  - INTESTINAL FUNCTIONAL DISORDER [None]
  - PHARMACEUTICAL PRODUCT COMPLAINT [None]
